FAERS Safety Report 20881987 (Version 1)
Quarter: 2022Q2

REPORT INFORMATION
  Report Type: Spontaneous
  Country: US (occurrence: US)
  Receive Date: 20220527
  Receipt Date: 20220527
  Transmission Date: 20220720
  Serious: Yes (Other)
  Sender: FDA-Public Use
  Company Number: US-NAARI PTE LIMITED-2021NP000066

PATIENT
  Age: 27 Year
  Sex: Female

DRUGS (4)
  1. ETHINYL ESTRADIOL\FERROUS FUMARATE\NORETHINDRONE ACETATE [Suspect]
     Active Substance: ETHINYL ESTRADIOL\FERROUS FUMARATE\NORETHINDRONE ACETATE
     Indication: Haemoptysis
     Dosage: ORAL CONTRACEPTIVE PILL (OCP), 1.5 MG/30 MCG; INITIATED ON A THREE-WEEK ROTATING CYCLE WITH A SKIPPE
     Route: 048
  2. VITAMIN K [Concomitant]
     Active Substance: PHYTONADIONE
     Indication: Haemoptysis
     Dosage: 5 MG, THREE TIMES PER WEEK
     Route: 065
  3. VITAMIN K [Concomitant]
     Active Substance: PHYTONADIONE
     Dosage: 10 MG, THREE TIMES PER WEEK
     Route: 065
  4. AMINOCAPROIC ACID [Concomitant]
     Active Substance: AMINOCAPROIC ACID
     Indication: Haemoptysis
     Dosage: UNK (LOW-DOSE)
     Route: 065

REACTIONS (1)
  - Pulmonary embolism [Recovered/Resolved]
